FAERS Safety Report 10089863 (Version 2)
Quarter: 2014Q4

REPORT INFORMATION
  Report Type: Report from Study
  Country: JP (occurrence: JP)
  Receive Date: 20140421
  Receipt Date: 20141027
  Transmission Date: 20150528
  Serious: Yes (Other)
  Sender: FDA-Public Use
  Company Number: JP-OTSUKA-JP-2014-13288

PATIENT

DRUGS (7)
  1. ADALAT [Concomitant]
     Active Substance: NIFEDIPINE
     Indication: CARDIAC FAILURE
     Dosage: 20 MG MILLIGRAM(S), DAILY DOSE
     Route: 048
  2. HANP [Concomitant]
     Active Substance: CARPERITIDE
     Indication: CARDIAC FAILURE
     Dosage: 0.125 UG/KG/MIN, DAILY DOSE
     Route: 042
     Dates: start: 20131019, end: 20131020
  3. MAINTATE [Concomitant]
     Active Substance: BISOPROLOL FUMARATE
     Indication: CARDIAC FAILURE
     Dosage: 1.25 MG MILLIGRAM(S), DAILY DOSE
     Route: 048
  4. LASIX [Concomitant]
     Active Substance: FUROSEMIDE
     Indication: CARDIAC FAILURE
     Dosage: 20 MG MILLIGRAM(S), DAILY DOSE
     Route: 042
     Dates: start: 20131019, end: 20131020
  5. SAMSCA [Suspect]
     Active Substance: TOLVAPTAN
     Indication: OEDEMA DUE TO CARDIAC DISEASE
     Dosage: 7.5 MG MILLIGRAM(S), QAM
     Route: 048
     Dates: start: 20131019, end: 20131019
  6. COVERSYL [Concomitant]
     Active Substance: PERINDOPRIL
     Indication: CARDIAC FAILURE
     Dosage: 1 MG MILLIGRAM(S), DAILY DOSE
     Route: 048
  7. BAYASPIRIN [Concomitant]
     Active Substance: ASPIRIN
     Indication: CARDIAC FAILURE
     Dosage: 100 MG MILLIGRAM(S), DAILY DOSE
     Route: 048

REACTIONS (1)
  - Delirium [Unknown]

NARRATIVE: CASE EVENT DATE: 20131019
